FAERS Safety Report 21240859 (Version 1)
Quarter: 2022Q3

REPORT INFORMATION
  Report Type: Spontaneous
  Country: US (occurrence: US)
  Receive Date: 20220823
  Receipt Date: 20220823
  Transmission Date: 20221026
  Serious: No
  Sender: FDA-Public Use
  Company Number: US-BAUSCH-BL-2022-020113

PATIENT
  Age: 62 Year
  Sex: Female
  Weight: 55.842 kg

DRUGS (2)
  1. RETIN-A MICRO [Suspect]
     Active Substance: TRETINOIN
     Indication: Acne
     Route: 061
  2. RETIN-A MICRO [Suspect]
     Active Substance: TRETINOIN

REACTIONS (2)
  - Dry skin [Unknown]
  - Skin exfoliation [Unknown]
